FAERS Safety Report 6902994-9 (Version None)
Quarter: 2010Q3

REPORT INFORMATION
  Report Type: 
  Country: None (occurrence: None)
  Receive Date: 20100803
  Receipt Date: 20081104
  Transmission Date: 20110219
  Serious: No
  Sender: FDA-Public Use
  Company Number: US-PFIZER INC-2008076616

PATIENT
  Sex: Female
  Weight: 63.6 kg

DRUGS (11)
  1. LYRICA [Suspect]
     Indication: PAIN
     Route: 048
     Dates: start: 20080101, end: 20080801
  2. HYDROCODONE BITARTRATE [Suspect]
     Indication: PAIN
     Dates: end: 20080101
  3. DARVOCET [Suspect]
     Indication: PAIN
     Dates: end: 20080101
  4. VYTORIN [Concomitant]
  5. TOPROL-XL [Concomitant]
  6. CALCIUM [Concomitant]
  7. VITAMIN D [Concomitant]
  8. VITAMIN B-12 [Concomitant]
  9. VITAMIN B COMPLEX CAP [Concomitant]
  10. FLAXSEED OIL [Concomitant]
  11. PRILOSEC [Concomitant]

REACTIONS (7)
  - DEPRESSION [None]
  - HEADACHE [None]
  - MENTAL IMPAIRMENT [None]
  - PAIN [None]
  - SWELLING [None]
  - VISION BLURRED [None]
  - WITHDRAWAL SYNDROME [None]
